FAERS Safety Report 15125121 (Version 1)
Quarter: 2018Q3

REPORT INFORMATION
  Report Type: Spontaneous
  Country: FR (occurrence: FR)
  Receive Date: 20180710
  Receipt Date: 20180710
  Transmission Date: 20181010
  Serious: Yes (Hospitalization)
  Sender: FDA-Public Use
  Company Number: FR-009507513-1807FRA002989

PATIENT
  Age: 74 Year
  Sex: Female
  Weight: 56 kg

DRUGS (9)
  1. ATARAX [Concomitant]
     Active Substance: HYDROXYZINE HYDROCHLORIDE
  2. AERIUS [Concomitant]
     Active Substance: DESLORATADINE
  3. FEMARA [Concomitant]
     Active Substance: LETROZOLE
  4. SERETIDE [Concomitant]
     Active Substance: FLUTICASONE PROPIONATE\SALMETEROL XINAFOATE
  5. PLAVIX [Concomitant]
     Active Substance: CLOPIDOGREL BISULFATE
  6. SERESTA [Concomitant]
     Active Substance: OXAZEPAM
  7. DIPROSONE [Suspect]
     Active Substance: BETAMETHASONE DIPROPIONATE
     Indication: SKIN ULCER
     Route: 061
     Dates: start: 20180314, end: 20180606
  8. IMOVANE [Concomitant]
     Active Substance: ZOPICLONE
  9. INEXIUM (ESOMEPRAZOLE MAGNESIUM) [Concomitant]
     Active Substance: ESOMEPRAZOLE MAGNESIUM

REACTIONS (1)
  - Erysipelas [Recovering/Resolving]

NARRATIVE: CASE EVENT DATE: 20180606
